FAERS Safety Report 19721130 (Version 1)
Quarter: 2021Q3

REPORT INFORMATION
  Report Type: Spontaneous
  Country: US (occurrence: US)
  Receive Date: 20210819
  Receipt Date: 20210819
  Transmission Date: 20211014
  Serious: Yes (Other)
  Sender: FDA-Public Use
  Company Number: US-LEADINGPHARMA-US-2021LEALIT00253

PATIENT
  Age: 45 Year
  Sex: Male

DRUGS (1)
  1. LORAZEPAM. [Suspect]
     Active Substance: LORAZEPAM
     Indication: CATATONIA
     Route: 065

REACTIONS (4)
  - Muscle injury [Recovered/Resolved]
  - Catatonia [Recovered/Resolved]
  - Condition aggravated [Recovered/Resolved]
  - Drug ineffective for unapproved indication [Unknown]
